FAERS Safety Report 9055509 (Version 1)
Quarter: 2013Q1

REPORT INFORMATION
  Report Type: Spontaneous
  Country: US (occurrence: US)
  Receive Date: 20130206
  Receipt Date: 20130206
  Transmission Date: 20140127
  Serious: Yes (Other)
  Sender: FDA-Public Use
  Company Number: US-GLAXOSMITHKLINE-A1010168A

PATIENT
  Age: 35 Year
  Sex: Female

DRUGS (6)
  1. LAMICTAL [Suspect]
     Indication: BIPOLAR DISORDER
     Route: 048
     Dates: start: 20121029, end: 20130129
  2. REMERON [Concomitant]
  3. HYDROXYZINE [Concomitant]
  4. LEVOTHYROXINE [Concomitant]
  5. LORATADINE [Concomitant]
  6. METAMUCIL [Concomitant]

REACTIONS (12)
  - Suicidal ideation [Recovering/Resolving]
  - Screaming [Recovering/Resolving]
  - Abnormal behaviour [Recovering/Resolving]
  - Feeling abnormal [Recovering/Resolving]
  - Tremor [Recovering/Resolving]
  - Constipation [Recovering/Resolving]
  - Painful defaecation [Recovering/Resolving]
  - Haemorrhoids [Not Recovered/Not Resolved]
  - Decreased appetite [Recovering/Resolving]
  - Weight decreased [Unknown]
  - Anger [Recovering/Resolving]
  - Palpitations [Unknown]
